FAERS Safety Report 6553931-0 (Version None)
Quarter: 2010Q1

REPORT INFORMATION
  Report Type: 
  Country: None (occurrence: None)
  Receive Date: 20100127
  Receipt Date: 20100119
  Transmission Date: 20100710
  Serious: Yes (Hospitalization, Other)
  Sender: FDA-Public Use
  Company Number: JP-ROCHE-648512

PATIENT
  Sex: Male
  Weight: 33 kg

DRUGS (19)
  1. TOCILIZUMAB [Suspect]
     Indication: JUVENILE ARTHRITIS
     Route: 041
     Dates: start: 20080704, end: 20080808
  2. TOCILIZUMAB [Suspect]
     Route: 041
     Dates: start: 20080912, end: 20081031
  3. TOCILIZUMAB [Suspect]
     Route: 041
     Dates: start: 20081121, end: 20090306
  4. TOCILIZUMAB [Suspect]
     Route: 041
     Dates: start: 20090319, end: 20090408
  5. TOCILIZUMAB [Suspect]
     Route: 041
     Dates: start: 20090508, end: 20090522
  6. TOCILIZUMAB [Suspect]
     Route: 041
     Dates: start: 20090608, end: 20090608
  7. TOCILIZUMAB [Suspect]
     Route: 041
     Dates: start: 20090619, end: 20090619
  8. TOCILIZUMAB [Suspect]
     Route: 041
     Dates: start: 20090703, end: 20090703
  9. PREDNISOLONE [Suspect]
     Indication: JUVENILE ARTHRITIS
     Route: 048
     Dates: end: 20090501
  10. PREDNISOLONE [Suspect]
     Route: 048
     Dates: start: 20090502, end: 20090607
  11. PREDNISOLONE [Suspect]
     Route: 048
     Dates: start: 20090608, end: 20090101
  12. PREDNISOLONE [Suspect]
     Route: 048
     Dates: start: 20090717, end: 20090804
  13. PREDNISOLONE [Suspect]
     Route: 048
     Dates: start: 20090805
  14. CYCLOSPORINE [Suspect]
     Indication: JUVENILE ARTHRITIS
     Dosage: DRUG REPORTED AS: NEORAL(CICLOSPORIN)
     Route: 048
  15. DEXAMETHASONE PALMITATE [Suspect]
     Indication: JUVENILE ARTHRITIS
     Dosage: DRUG NAME: LIMETHASON, ROUTE: IV (NOS)
     Route: 042
     Dates: start: 20090323, end: 20090323
  16. DEXAMETHASONE PALMITATE [Suspect]
     Route: 042
     Dates: start: 20090415, end: 20090415
  17. DEXAMETHASONE PALMITATE [Suspect]
     Route: 042
     Dates: start: 20090424, end: 20090424
  18. ONEALFA [Concomitant]
     Dosage: DOSE FORM: ORAL FORMULATION NOS
     Route: 048
  19. AREDIA [Concomitant]
     Dosage: ROUTE: INTRAVENOUS (NOS) DRUG REPORTED AS: AREDIA(PAMIDRONATE DISODIUM)
     Route: 042
     Dates: start: 20081014, end: 20081016

REACTIONS (8)
  - ABDOMINAL PAIN [None]
  - ENTEROCOLITIS [None]
  - GASTROENTERITIS [None]
  - GASTROINTESTINAL HAEMORRHAGE [None]
  - LARGE INTESTINAL ULCER [None]
  - PAIN IN EXTREMITY [None]
  - STOMATITIS [None]
  - UPPER RESPIRATORY TRACT INFLAMMATION [None]
